FAERS Safety Report 8793116 (Version 15)
Quarter: 2019Q1

REPORT INFORMATION
  Report Type: Report from Study
  Country: CA (occurrence: CA)
  Receive Date: 20120917
  Receipt Date: 20190211
  Transmission Date: 20190418
  Serious: Yes (Life-Threatening, Other)
  Sender: FDA-Public Use
  Company Number: CA-ROCHE-1122341

PATIENT
  Age: 70 Year
  Sex: Female
  Weight: 89.4 kg

DRUGS (12)
  1. CELEXA [Suspect]
     Active Substance: CITALOPRAM HYDROBROMIDE
     Indication: DEPRESSION
     Route: 048
  2. VALTREX [Concomitant]
     Active Substance: VALACYCLOVIR HYDROCHLORIDE
  3. RITUXAN [Suspect]
     Active Substance: RITUXIMAB
     Indication: RHEUMATOID ARTHRITIS
     Dosage: PREVIOUS RITUXIMAB INFUSION: 29/MAR/2012, 21/JUL/2014, 20/APR/2015?LAST DOSE: 04/MAY/2015
     Route: 042
     Dates: start: 20110209
  4. DIPHENHYDRAMINE. [Concomitant]
     Active Substance: DIPHENHYDRAMINE
     Indication: PREMEDICATION
     Route: 048
     Dates: start: 20110209
  5. METHYLPREDNISOLONE. [Concomitant]
     Active Substance: METHYLPREDNISOLONE
     Indication: PREMEDICATION
     Route: 042
     Dates: start: 20110209
  6. NEXIUM [Concomitant]
     Active Substance: ESOMEPRAZOLE MAGNESIUM
  7. LOSEC [Concomitant]
     Active Substance: OMEPRAZOLE
  8. REFRESH ENDURA [Concomitant]
     Route: 047
  9. VENTOLIN [Concomitant]
     Active Substance: ALBUTEROL SULFATE
  10. ACETAMINOPHEN. [Concomitant]
     Active Substance: ACETAMINOPHEN
     Indication: PREMEDICATION
     Route: 048
     Dates: start: 20110209
  11. SALBUTAMOL [Concomitant]
     Active Substance: ALBUTEROL
     Route: 065
  12. TYLENOL [Concomitant]
     Active Substance: ACETAMINOPHEN

REACTIONS (34)
  - Head injury [Unknown]
  - Eye contusion [Unknown]
  - Fatigue [Not Recovered/Not Resolved]
  - Blood pressure diastolic decreased [Unknown]
  - Nausea [Unknown]
  - Obliterative bronchiolitis [Unknown]
  - Abdominal hernia [Unknown]
  - Musculoskeletal stiffness [Unknown]
  - Chest discomfort [Unknown]
  - Headache [Unknown]
  - Rheumatoid arthritis [Not Recovered/Not Resolved]
  - Depression [Not Recovered/Not Resolved]
  - Herpes zoster [Recovered/Resolved]
  - Dysphonia [Not Recovered/Not Resolved]
  - Productive cough [Unknown]
  - Dyspnoea [Unknown]
  - Laryngospasm [Unknown]
  - Fall [Unknown]
  - Skin laceration [Recovering/Resolving]
  - Lower respiratory tract infection [Unknown]
  - Pyrexia [Unknown]
  - Influenza [Not Recovered/Not Resolved]
  - Chronic obstructive pulmonary disease [Recovering/Resolving]
  - Flushing [Unknown]
  - Arthralgia [Unknown]
  - Aphonia [Not Recovered/Not Resolved]
  - Hypertension [Unknown]
  - Lymphadenopathy [Unknown]
  - Somnolence [Unknown]
  - Cough [Unknown]
  - Asthma [Unknown]
  - Infusion related reaction [Unknown]
  - Eye pain [Unknown]
  - Oxygen saturation decreased [Unknown]

NARRATIVE: CASE EVENT DATE: 20110209
